FAERS Safety Report 8612717-3 (Version None)
Quarter: 2012Q3

REPORT INFORMATION
  Report Type: 
  Country: None (occurrence: None)
  Receive Date: 20120822
  Receipt Date: 20110818
  Transmission Date: 20120928
  Serious: No
  Sender: FDA-Public Use
  Company Number: US-ASTRAZENECA-2011SE49969

PATIENT
  Age: 53 Year
  Sex: Female

DRUGS (2)
  1. SYMBICORT [Suspect]
     Dosage: 16/4.5 MCG 3 PUFFS 2 TIMES,DAILY
     Route: 055
  2. SYMBICORT [Suspect]
     Dosage: 160/4.5 MG,DAILY
     Route: 055

REACTIONS (2)
  - HYPERSENSITIVITY [None]
  - INCORRECT DOSE ADMINISTERED [None]
